FAERS Safety Report 8493239-X (Version None)
Quarter: 2012Q3

REPORT INFORMATION
  Report Type: 
  Country: None (occurrence: None)
  Receive Date: 20120706
  Receipt Date: 20120629
  Transmission Date: 20120928
  Serious: Yes (Other)
  Sender: FDA-Public Use
  Company Number: PHHY2012JP056025

PATIENT
  Age: 37 Year
  Sex: Female

DRUGS (6)
  1. CYCLOSPORINE [Suspect]
     Dosage: 100 MG, UNK
  2. CYCLOSPORINE [Suspect]
     Dosage: 120 MG, UNK
  3. BASILIXIMAB [Concomitant]
     Dosage: UNK UKN, UNK
  4. CYCLOSPORINE [Suspect]
     Dosage: 80 MG, UNK
  5. MYCOPHENOLATE MOFETIL [Concomitant]
     Dosage: 500 MG, UNK
  6. METHYLPREDNISOLONE [Concomitant]
     Dosage: 4 MG, UNK

REACTIONS (6)
  - DRUG HYPERSENSITIVITY [None]
  - CYSTITIS [None]
  - GRANULOMA [None]
  - URINARY TRACT INFECTION [None]
  - TREMOR [None]
  - TUBULOINTERSTITIAL NEPHRITIS [None]
